FAERS Safety Report 16032662 (Version 11)
Quarter: 2021Q2

REPORT INFORMATION
  Report Type: Report from Study
  Country: US (occurrence: US)
  Receive Date: 20190305
  Receipt Date: 20210520
  Transmission Date: 20210716
  Serious: Yes (Other)
  Sender: FDA-Public Use
  Company Number: PHEH2019US008743

PATIENT
  Age: 11 Year
  Sex: Male

DRUGS (2)
  1. AFINITOR [Suspect]
     Active Substance: EVEROLIMUS
     Indication: TUBEROUS SCLEROSIS COMPLEX
     Dosage: 12 MG, QD (SOLUTION)
     Route: 048
     Dates: start: 20181110
  2. AFINITOR [Suspect]
     Active Substance: EVEROLIMUS
     Indication: PARTIAL SEIZURES
     Dosage: 12 MG, QD
     Route: 048
     Dates: start: 20181029

REACTIONS (6)
  - Asthenia [Unknown]
  - Generalised tonic-clonic seizure [Unknown]
  - Weight increased [Unknown]
  - Drug level increased [Unknown]
  - Seizure [Unknown]
  - Abnormal behaviour [Unknown]

NARRATIVE: CASE EVENT DATE: 20200327
